FAERS Safety Report 8516391-6 (Version None)
Quarter: 2012Q3

REPORT INFORMATION
  Report Type: 
  Country: None (occurrence: None)
  Receive Date: 20120718
  Receipt Date: 20120702
  Transmission Date: 20120928
  Serious: No
  Sender: FDA-Public Use
  Company Number: US-BIOGENIDEC-2012BI023733

PATIENT
  Sex: Male

DRUGS (1)
  1. AVONEX [Suspect]
     Indication: MULTIPLE SCLEROSIS
     Route: 030

REACTIONS (6)
  - COORDINATION ABNORMAL [None]
  - CHILLS [None]
  - MUSCULOSKELETAL DISORDER [None]
  - HEADACHE [None]
  - MIGRAINE [None]
  - MOBILITY DECREASED [None]
